FAERS Safety Report 10985886 (Version 1)
Quarter: 2015Q2

REPORT INFORMATION
  Report Type: Spontaneous
  Country: US (occurrence: US)
  Receive Date: 20150404
  Receipt Date: 20150404
  Transmission Date: 20150821
  Serious: No
  Sender: FDA-Public Use
  Company Number: US-SA-2014SA136106

PATIENT
  Sex: Female

DRUGS (2)
  1. ALLEGRA-D [Suspect]
     Active Substance: FEXOFENADINE\PSEUDOEPHEDRINE
     Indication: SINUS CONGESTION
     Route: 048
     Dates: start: 20140928
  2. GUAIFENESIN. [Concomitant]
     Active Substance: GUAIFENESIN

REACTIONS (3)
  - Insomnia [Unknown]
  - Wrong technique in drug usage process [Unknown]
  - Therapeutic response decreased [Unknown]
